FAERS Safety Report 14967195 (Version 1)
Quarter: 2018Q2

REPORT INFORMATION
  Report Type: Spontaneous
  Country: ES (occurrence: ES)
  Receive Date: 20180604
  Receipt Date: 20180604
  Transmission Date: 20180711
  Serious: Yes (Other)
  Sender: FDA-Public Use
  Company Number: ES-CHEPLA-C20180047

PATIENT
  Age: 13 Year
  Sex: Female

DRUGS (2)
  1. ATRA (ALL-TRANS RETINOIC ACID) [Suspect]
     Active Substance: TRETINOIN
     Indication: ACUTE MYELOID LEUKAEMIA
     Dosage: UNKNOWN
     Route: 065
  2. AZITHROMYCIN ANHYDROUS. [Concomitant]
     Active Substance: AZITHROMYCIN ANHYDROUS

REACTIONS (3)
  - Intracranial pressure increased [Recovered/Resolved]
  - Haemoglobin decreased [None]
  - Product use in unapproved indication [Unknown]
